FAERS Safety Report 5959994-5 (Version None)
Quarter: 2008Q4

REPORT INFORMATION
  Report Type: 
  Country: None (occurrence: None)
  Receive Date: 20081120
  Receipt Date: 20081110
  Transmission Date: 20090506
  Serious: Yes (Hospitalization, Other)
  Sender: FDA-Public Use
  Company Number: US-JNJFOC-20081006984

PATIENT
  Age: 45 Year
  Sex: Male

DRUGS (4)
  1. INTELENCE [Suspect]
     Indication: HIV INFECTION
     Route: 048
  2. TRUVADA [Concomitant]
     Indication: HIV INFECTION
  3. REYATAZ [Concomitant]
     Indication: HIV INFECTION
  4. NORVIR [Concomitant]
     Indication: HIV INFECTION

REACTIONS (5)
  - ARTHRALGIA [None]
  - CD4 LYMPHOCYTES DECREASED [None]
  - IDIOPATHIC THROMBOCYTOPENIC PURPURA [None]
  - JOINT SWELLING [None]
  - VIRAL LOAD INCREASED [None]
